FAERS Safety Report 6191923-4 (Version None)
Quarter: 2009Q2

REPORT INFORMATION
  Report Type: 
  Country: None (occurrence: None)
  Receive Date: 20090515
  Receipt Date: 20090408
  Transmission Date: 20091009
  Serious: Yes (Hospitalization)
  Sender: FDA-Public Use
  Company Number: GB-ROCHE-607284

PATIENT
  Sex: Male
  Weight: 68.8 kg

DRUGS (29)
  1. MYCOPHENOLATE MOFETIL [Suspect]
     Indication: ANTI-NEUTROPHIL CYTOPLASMIC ANTIBODY POSITIVE VASCULITIS
     Dosage: OFFICIALLY WITHDRAWN FROM STUDY ON 4 AUG 2008
     Route: 065
     Dates: start: 20080602, end: 20080728
  2. CYCLOPHOSPHAMIDE [Suspect]
     Indication: ANTI-NEUTROPHIL CYTOPLASMIC ANTIBODY POSITIVE VASCULITIS
     Dosage: CYCLE 1
     Route: 042
     Dates: start: 20080530
  3. CYCLOPHOSPHAMIDE [Suspect]
     Dosage: CYCLE 2
     Route: 042
     Dates: start: 20080804
  4. CYCLOPHOSPHAMIDE [Suspect]
     Dosage: CYCLE 3
     Route: 042
     Dates: start: 20080818
  5. CYCLOPHOSPHAMIDE [Suspect]
     Dosage: CYCLE 4
     Route: 042
     Dates: start: 20080901
  6. CYCLOPHOSPHAMIDE [Suspect]
     Dosage: CYCLE 5
     Route: 042
     Dates: start: 20080918
  7. CYCLOPHOSPHAMIDE [Suspect]
     Dosage: CYCLE 6
     Route: 042
     Dates: start: 20081223
  8. CYCLOPHOSPHAMIDE [Suspect]
     Dosage: CYCLE 7
     Route: 042
     Dates: start: 20090129
  9. CYCLOPHOSPHAMIDE [Suspect]
     Dosage: ROUTE: ORAL, CYCLE 8
     Route: 042
     Dates: start: 20090219, end: 20090221
  10. CYCLOPHOSPHAMIDE [Suspect]
     Dosage: ROUTE: ORAL, CYCLE 9
     Route: 042
     Dates: start: 20090314, end: 20090316
  11. AMITRIPTLINE HYDROCHLORIDE TAB [Suspect]
     Indication: DEPRESSION
     Route: 065
     Dates: start: 20090310, end: 20090311
  12. ADIZEM XL [Concomitant]
     Dates: start: 20030101
  13. AMPHOTERICIN B [Concomitant]
     Route: 048
  14. ASPIRIN [Concomitant]
     Dates: start: 20030101
  15. AZATHIOPRINE [Concomitant]
  16. CALCICHEW [Concomitant]
     Dates: start: 20080530
  17. COTRIMOXAZOLE [Concomitant]
  18. PREDNISOLONE [Concomitant]
  19. PREDNISOLONE [Concomitant]
  20. PREDNISOLONE [Concomitant]
     Dates: start: 20080226
  21. PREGABALIN [Concomitant]
     Dates: start: 20080911
  22. RANITIDINE [Concomitant]
  23. SERETIDE [Concomitant]
     Dosage: DRUG REPORTED AS: ^SERETIDE EVOHALER^. DOSE FORM: PUFF
     Dates: start: 19850101
  24. LACRILUBE [Concomitant]
     Dosage: DRUG REPORTED AS LACRILUBE EYE OINTMENT.
     Dates: start: 20081212, end: 20081213
  25. RITUXIMAB [Concomitant]
     Route: 042
     Dates: start: 20081014
  26. RITUXIMAB [Concomitant]
     Route: 042
     Dates: start: 20081028
  27. SEPTRIN [Concomitant]
     Dosage: ON ALTERNATIVE DAYS
     Dates: start: 20080530
  28. BENDROFLUAZIDE [Concomitant]
     Dates: start: 20081223
  29. SALBUTAMOL [Concomitant]
     Dosage: AS REQUIRED
     Dates: start: 19850101

REACTIONS (15)
  - ADVERSE DRUG REACTION [None]
  - ASTHENIA [None]
  - BLOOD PRESSURE INCREASED [None]
  - CHEST X-RAY ABNORMAL [None]
  - DEPRESSION [None]
  - DISEASE PROGRESSION [None]
  - DYSPNOEA [None]
  - EYE PAIN [None]
  - FLUID OVERLOAD [None]
  - NECK PAIN [None]
  - NEURALGIA [None]
  - NEUROPATHY PERIPHERAL [None]
  - PAIN IN EXTREMITY [None]
  - VASCULITIS [None]
  - WHEEZING [None]
